FAERS Safety Report 6238121-3 (Version None)
Quarter: 2009Q2

REPORT INFORMATION
  Report Type: 
  Country: None (occurrence: None)
  Receive Date: 20090622
  Receipt Date: 20090612
  Transmission Date: 20091009
  Serious: Yes (Life-Threatening)
  Sender: FDA-Public Use
  Company Number: FR-ABBOTT-09P-056-0579455-00

PATIENT
  Sex: Male

DRUGS (2)
  1. DEPAKENE [Suspect]
     Indication: POST-TRAUMATIC EPILEPSY
     Route: 048
     Dates: start: 20071201, end: 20090420
  2. GARDENAL [Suspect]
     Indication: POST-TRAUMATIC EPILEPSY
     Dosage: OD
     Route: 048
     Dates: start: 20090225, end: 20090420

REACTIONS (3)
  - PANCREATITIS HAEMORRHAGIC [None]
  - PANCREATITIS NECROTISING [None]
  - RENAL FAILURE ACUTE [None]
